FAERS Safety Report 9275828 (Version 1)
Quarter: 2012Q4

REPORT INFORMATION
  Report Type: Spontaneous
  Country: GB (occurrence: None)
  Receive Date: 20121109
  Receipt Date: 20121109
  Transmission Date: 20130627
  Serious: Yes (Death, Hospitalization)
  Sender: FDA-Public Use
  Company Number: 2011S1000823

PATIENT
  Age: 81 Year
  Sex: Male

DRUGS (8)
  1. CUBICIN [Suspect]
     Indication: GRAFT INFECTION
     Route: 042
     Dates: start: 20110827
  2. ASPIRIN [Concomitant]
  3. COLISTIN MESILATE SODIUM [Concomitant]
  4. ENOXAPARIN [Concomitant]
  5. FERROUS FUMARATE [Concomitant]
  6. LANSOPRAZOLE [Concomitant]
  7. MEROPENEM [Concomitant]
  8. VANCOMYCIN [Concomitant]

REACTIONS (3)
  - Renal impairment [None]
  - Blood calcium increased [None]
  - Off label use [None]
